FAERS Safety Report 11977209 (Version 3)
Quarter: 2016Q1

REPORT INFORMATION
  Report Type: Spontaneous
  Country: JP (occurrence: JP)
  Receive Date: 20160129
  Receipt Date: 20160331
  Transmission Date: 20160526
  Serious: Yes (Other)
  Sender: FDA-Public Use
  Company Number: PHJP2016JP000677

PATIENT
  Age: 85 Year
  Sex: Male

DRUGS (3)
  1. EXELON [Suspect]
     Active Substance: RIVASTIGMINE TARTRATE
     Dosage: PATCH 10 (CM2), 3 PATCHES
     Route: 062
     Dates: start: 20160107
  2. EXELON [Suspect]
     Active Substance: RIVASTIGMINE TARTRATE
     Indication: DEMENTIA ALZHEIMER^S TYPE
     Dosage: 9.5 MG/24H (PATCH 10 CM2, 18 MG OF RIVASTIGMINE BASE)
     Route: 062
  3. EXELON [Suspect]
     Active Substance: RIVASTIGMINE TARTRATE
     Dosage: 1.9 MG/24H (PATCH 2.5, 4.5 MG OF RIVASTIGMINE BASE)
     Route: 062

REACTIONS (6)
  - Overdose [Recovered/Resolved]
  - Dementia [Unknown]
  - Decreased appetite [Recovered/Resolved]
  - Feeling abnormal [Recovered/Resolved]
  - Somnolence [Recovered/Resolved]
  - Drug administration error [Recovered/Resolved]

NARRATIVE: CASE EVENT DATE: 20160107
